FAERS Safety Report 17347869 (Version 2)
Quarter: 2020Q1

REPORT INFORMATION
  Report Type: Spontaneous
  Country: CN (occurrence: CN)
  Receive Date: 20200130
  Receipt Date: 20200204
  Transmission Date: 20200409
  Serious: Yes (Hospitalization, Other)
  Sender: FDA-Public Use
  Company Number: CN-SPECGX-T201909230

PATIENT
  Age: 67 Year
  Sex: Female
  Weight: 58 kg

DRUGS (11)
  1. OXYCODONE/ACETAMINOPHEN [Suspect]
     Active Substance: ACETAMINOPHEN\OXYCODONE HYDROCHLORIDE
     Indication: PAIN
     Dosage: 5 MILLIGRAM, Q6H
     Route: 065
  2. MORPHINE HYDROCHLORIDE [Concomitant]
     Active Substance: MORPHINE HYDROCHLORIDE
     Dosage: 30 MILLIGRAM
     Route: 065
     Dates: start: 20170816
  3. OXYCODONE HYDROCHLORIDE. [Concomitant]
     Active Substance: OXYCODONE HYDROCHLORIDE
     Dosage: 60 MILLIGRAM, BID
     Route: 065
     Dates: start: 20170815, end: 20170815
  4. OXYCODONE HYDROCHLORIDE. [Concomitant]
     Active Substance: OXYCODONE HYDROCHLORIDE
     Indication: PAIN
     Dosage: 20 MILLIGRAM, BID
     Route: 065
     Dates: start: 20170813, end: 20170813
  5. OXYCODONE HYDROCHLORIDE. [Concomitant]
     Active Substance: OXYCODONE HYDROCHLORIDE
     Dosage: 80 MILLIGRAM, BID
     Route: 065
     Dates: start: 20170816
  6. MORPHINE HYDROCHLORIDE [Concomitant]
     Active Substance: MORPHINE HYDROCHLORIDE
     Dosage: 25 MILLIGRAM
     Route: 065
     Dates: start: 20170815, end: 20170815
  7. IOVERSOL [Concomitant]
     Active Substance: IOVERSOL
     Indication: TRANSCATHETER ARTERIAL CHEMOEMBOLISATION
     Dosage: 35 GRAM
     Route: 065
     Dates: start: 20170822
  8. OXYCODONE HYDROCHLORIDE. [Concomitant]
     Active Substance: OXYCODONE HYDROCHLORIDE
     Dosage: 30 MILLIGRAM, BID
     Route: 065
     Dates: start: 20170814, end: 20170814
  9. MORPHINE HYDROCHLORIDE [Concomitant]
     Active Substance: MORPHINE HYDROCHLORIDE
     Indication: PAIN
     Dosage: 10 MILLIGRAM
     Route: 065
     Dates: start: 20170813, end: 20170813
  10. MORPHINE HYDROCHLORIDE [Concomitant]
     Active Substance: MORPHINE HYDROCHLORIDE
     Dosage: 15 MILLIGRAM
     Route: 065
     Dates: start: 20170814, end: 20170814
  11. GEMCITABINE HYDROCHLORIDE. [Concomitant]
     Active Substance: GEMCITABINE HYDROCHLORIDE
     Indication: TRANSCATHETER ARTERIAL CHEMOEMBOLISATION
     Dosage: 0.8 GRAM
     Route: 065
     Dates: start: 20170822

REACTIONS (8)
  - Hepatic cancer metastatic [Unknown]
  - Drug intolerance [Unknown]
  - Nausea [Recovered/Resolved]
  - Transcatheter arterial chemoembolisation [Unknown]
  - Vomiting [Recovered/Resolved]
  - Mental disorder [Unknown]
  - Constipation [Unknown]
  - Decreased appetite [Unknown]
